FAERS Safety Report 20016971 (Version 1)
Quarter: 2021Q4

REPORT INFORMATION
  Report Type: Spontaneous
  Country: US (occurrence: US)
  Receive Date: 20211030
  Receipt Date: 20211030
  Transmission Date: 20220303
  Serious: Yes (Hospitalization, Other)
  Sender: FDA-Public Use
  Company Number: US-MACLEODS PHARMACEUTICALS US LTD-MAC2021033146

PATIENT

DRUGS (3)
  1. TRIAMCINOLONE [Suspect]
     Active Substance: TRIAMCINOLONE
     Indication: Psoriasis
     Dosage: UNK
     Route: 065
  2. STELARA [Concomitant]
     Active Substance: USTEKINUMAB
     Indication: Psoriasis
     Dosage: UNK
     Route: 065
  3. ALBUTEROL [Concomitant]
     Active Substance: ALBUTEROL
     Indication: Chronic obstructive pulmonary disease
     Dosage: UNK
     Route: 065

REACTIONS (3)
  - Respiratory failure [Recovering/Resolving]
  - Pneumonia lipoid [Recovering/Resolving]
  - Pulmonary fibrosis [Recovering/Resolving]
